FAERS Safety Report 5884457-5 (Version None)
Quarter: 2008Q3

REPORT INFORMATION
  Report Type: 
  Country: None (occurrence: None)
  Receive Date: 20080916
  Receipt Date: 20080904
  Transmission Date: 20090109
  Serious: Yes (Hospitalization, Other)
  Sender: FDA-Public Use
  Company Number: GB-RANBAXY-2008RR-17560

PATIENT

DRUGS (15)
  1. ACETAMINOPHEN [Suspect]
     Route: 064
  2. CHLORPHENIRAMINE MALEATE [Suspect]
     Route: 064
  3. CYCLOSPORINE [Suspect]
     Route: 064
  4. DEXAMETHASONE [Suspect]
     Indication: MATERNAL THERAPY TO ENHANCE FOETAL LUNG MATURITY
     Route: 064
  5. GENTAMICIN [Suspect]
     Route: 064
  6. METRONIDAZOLE [Suspect]
     Route: 064
  7. MORPHINE [Suspect]
     Dosage: UNK
     Route: 064
  8. RINGER'S [Suspect]
     Route: 064
  9. RANITIDINE [Concomitant]
     Route: 064
  10. METOCLOPRAMIDE [Concomitant]
     Route: 064
  11. LINEZOLID [Concomitant]
     Route: 064
  12. ENOXAPARIN SODIUM [Concomitant]
     Indication: THROMBOSIS PROPHYLAXIS
     Route: 064
  13. SUXAMETHONIUM [Concomitant]
     Indication: ANAESTHESIA
     Route: 064
  14. SEVOFLURANE [Concomitant]
     Indication: ANAESTHESIA
     Route: 064
  15. TIOPENTHAL [Concomitant]
     Indication: ANAESTHESIA
     Route: 064

REACTIONS (1)
  - PREMATURE BABY [None]
